FAERS Safety Report 6203224-6 (Version None)
Quarter: 2009Q2

REPORT INFORMATION
  Report Type: 
  Country: None (occurrence: None)
  Receive Date: 20090527
  Receipt Date: 20070504
  Transmission Date: 20091009
  Serious: Yes (Other)
  Sender: FDA-Public Use
  Company Number: US-ASTRAZENECA-2006UW27823

PATIENT
  Age: 11335 Day
  Sex: Female
  Weight: 99.8 kg

DRUGS (23)
  1. SEROQUEL [Suspect]
     Indication: SCHIZOPHRENIA
     Dosage: 200MG,4 TABLETS AT BED TIME
     Route: 048
     Dates: start: 20040513
  2. SEROQUEL [Suspect]
     Indication: BIPOLAR DISORDER
     Dosage: 200MG,4 TABLETS AT BED TIME
     Route: 048
     Dates: start: 20040513
  3. SEROQUEL [Suspect]
     Indication: DEPRESSION
     Dosage: 200MG,4 TABLETS AT BED TIME
     Route: 048
     Dates: start: 20040513
  4. SEROQUEL [Suspect]
     Route: 048
     Dates: end: 20050101
  5. SEROQUEL [Suspect]
     Route: 048
     Dates: end: 20050101
  6. SEROQUEL [Suspect]
     Route: 048
     Dates: end: 20050101
  7. ABILIFY [Concomitant]
  8. GEODON [Concomitant]
  9. HALDOL [Concomitant]
  10. RISPERDAL [Concomitant]
     Dosage: 2 TABLETS,AT BED TIME
     Dates: start: 20060227
  11. ZYPREXA [Concomitant]
  12. ASPIRIN [Concomitant]
     Dates: start: 20060302
  13. XANAX [Concomitant]
     Dates: start: 20040601
  14. ZETIA [Concomitant]
     Dates: start: 20060302
  15. METOPROLOL [Concomitant]
     Dates: start: 20060302
  16. NITROGLYCERIN [Concomitant]
     Dates: start: 20060302
  17. SIMVASTATIN [Concomitant]
     Dates: start: 20060302
  18. LORAZEPAM [Concomitant]
     Dates: start: 20060302
  19. PROZAC [Concomitant]
     Dosage: 2 TABLETS IN THE MORNING
     Dates: start: 20060228
  20. AMBIEN CR [Concomitant]
     Dates: start: 20060228
  21. WELLBUTRIN XL [Concomitant]
     Dates: start: 20060228
  22. VYTORIN [Concomitant]
     Dosage: 10/40 MG,1 TABLET AT BED TIME
  23. LEXAPRO [Concomitant]
     Dates: start: 20040601

REACTIONS (2)
  - DIABETES MELLITUS INADEQUATE CONTROL [None]
  - TYPE 1 DIABETES MELLITUS [None]
